FAERS Safety Report 8446506-X (Version None)
Quarter: 2012Q2

REPORT INFORMATION
  Report Type: 
  Country: None (occurrence: None)
  Receive Date: 20120618
  Receipt Date: 20120615
  Transmission Date: 20120825
  Serious: No
  Sender: FDA-Public Use
  Company Number: US-PFIZER INC-2012145063

PATIENT
  Sex: Female
  Weight: 84.354 kg

DRUGS (11)
  1. LYRICA [Suspect]
     Dosage: 100 MG, 2X/DAY
     Route: 048
  2. LASIX [Concomitant]
     Dosage: 20 MG, 3X/WEEK
  3. EVISTA [Concomitant]
     Dosage: 60 MG, 1X/DAY
  4. LYRICA [Suspect]
     Indication: NEUROPATHY PERIPHERAL
     Dosage: 50 MG, 2X/DAY
     Route: 048
  5. LYRICA [Suspect]
     Dosage: 150 MG, 2X/DAY
     Route: 048
  6. VITAMIN B-12 [Concomitant]
     Dosage: UNK
  7. ZOLPIDEM [Concomitant]
     Dosage: 5 MG, 1X/DAY
  8. SANCTURA XR [Concomitant]
     Dosage: 60 MG, 1X/DAY
  9. BENICAR [Concomitant]
     Dosage: 40 MG, 1X/DAY
  10. POTASSIUM [Concomitant]
     Dosage: 595 MG, 2X/WEEK
  11. VITAMIN D [Concomitant]
     Dosage: 5000 UNITS, 3X/WEEK

REACTIONS (9)
  - WEIGHT INCREASED [None]
  - DIZZINESS [None]
  - HEADACHE [None]
  - MEMORY IMPAIRMENT [None]
  - DISTURBANCE IN ATTENTION [None]
  - VISION BLURRED [None]
  - SOMNOLENCE [None]
  - JOINT SWELLING [None]
  - OEDEMA PERIPHERAL [None]
